FAERS Safety Report 15538578 (Version 3)
Quarter: 2022Q1

REPORT INFORMATION
  Report Type: Report from Study
  Country: US (occurrence: US)
  Receive Date: 20181022
  Receipt Date: 20220106
  Transmission Date: 20220423
  Serious: Yes (Hospitalization, Other)
  Sender: FDA-Public Use
  Company Number: US-PFIZER INC-2018388783

PATIENT
  Age: 16 Year
  Sex: Female
  Weight: 58 kg

DRUGS (27)
  1. TEMSIROLIMUS [Suspect]
     Active Substance: TEMSIROLIMUS
     Indication: Alveolar rhabdomyosarcoma
     Dosage: 15 MG/M2, ON DAYS 1, 8,15 OF CYCLE 1-4, 8 AND 9
     Route: 042
     Dates: start: 20180211
  2. TEMSIROLIMUS [Suspect]
     Active Substance: TEMSIROLIMUS
     Dosage: TOTAL DOSE ADMINISTERED THIS COURSE WAS 24.9 MG, ON DAYS 1, 8, AND 15 OF CYCLE 10
     Route: 042
     Dates: end: 20180827
  3. CAMPTOSAR [Suspect]
     Active Substance: IRINOTECAN HYDROCHLORIDE
     Indication: Alveolar rhabdomyosarcoma
     Dosage: 50 MG/M2, ON DAYS 1-5 OF CYCLES 2,4,6,7 AND 9
     Route: 042
     Dates: start: 20180211, end: 20180827
  4. VINCRISTINE SULFATE [Suspect]
     Active Substance: VINCRISTINE SULFATE
     Indication: Alveolar rhabdomyosarcoma
     Dosage: 1.5 MG/M2, ON DAYS 1, 8, AND 15 OF CYCLES 1-4
     Route: 042
     Dates: start: 20180211
  5. VINCRISTINE SULFATE [Suspect]
     Active Substance: VINCRISTINE SULFATE
     Dosage: 1.5 MG/M2, DAY 1 OF CYCLE 5, DAY 1 AND 8 OF CYCLES 6 AND 7 AND 9, DAY 1,8,15 OF CYCLE 8
     Route: 042
  6. VINCRISTINE SULFATE [Suspect]
     Active Substance: VINCRISTINE SULFATE
     Dosage: 1 MG, DAY 1 OF CYCLE 10; TOTAL DOSE ADMINISTERED WAS 1MG
     Route: 042
     Dates: end: 20180827
  7. DACTINOMYCIN [Suspect]
     Active Substance: DACTINOMYCIN
     Indication: Alveolar rhabdomyosarcoma
     Dosage: 0.05 MG/KG, ON DAY 1 OF CYCLES 1,3 , 5 AND 8
     Route: 042
     Dates: start: 20180211
  8. DACTINOMYCIN [Suspect]
     Active Substance: DACTINOMYCIN
     Dosage: 2.5 MG, DAY 1 OF CYCLE 10
     Route: 042
     Dates: end: 20180827
  9. CYCLOPHOSPHAMIDE [Suspect]
     Active Substance: CYCLOPHOSPHAMIDE
     Indication: Alveolar rhabdomyosarcoma
     Dosage: 1200 MG/M2, ON DAY 1 OF CYCLES 1,3,5 AND 8
     Route: 042
     Dates: start: 20180211
  10. CYCLOPHOSPHAMIDE [Suspect]
     Active Substance: CYCLOPHOSPHAMIDE
     Dosage: 1992 MG, ON DAY 1 OF CYCLE 10
     Route: 042
     Dates: start: 20180827, end: 20180827
  11. DIPHENHYDRAMINE [Concomitant]
     Active Substance: DIPHENHYDRAMINE
  12. DOCUSATE SODIUM [Concomitant]
     Active Substance: DOCUSATE SODIUM
  13. ESCITALOPRAM [Concomitant]
     Active Substance: ESCITALOPRAM OXALATE
  14. GABAPENTIN [Concomitant]
     Active Substance: GABAPENTIN
  15. FAMOTIDINE [Concomitant]
     Active Substance: FAMOTIDINE
  16. LACTOBACILLUS RHAMNOSUS GG [Concomitant]
  17. LIDOCAINE\PRILOCAINE [Concomitant]
     Active Substance: LIDOCAINE\PRILOCAINE
  18. LOPERAMIDE [Concomitant]
     Active Substance: LOPERAMIDE
  19. LORAZEPAM [Concomitant]
     Active Substance: LORAZEPAM
  20. MEGESTROL [Concomitant]
     Active Substance: MEGESTROL
  21. METOCLOPRAMIDE [Concomitant]
     Active Substance: METOCLOPRAMIDE
  22. NORGESTIMATE AND ETHINYL ESTRADIOL [Concomitant]
     Active Substance: ETHINYL ESTRADIOL\NORGESTIMATE
  23. ONDANSETRON [Concomitant]
     Active Substance: ONDANSETRON
  24. OXYCODONE [Concomitant]
     Active Substance: OXYCODONE
  25. SCOPOLAMINE N-OXIDE [Concomitant]
     Active Substance: SCOPOLAMINE N-OXIDE
  26. SENNA LEAF [Concomitant]
     Active Substance: SENNA LEAF
  27. SULFAMETHOXAZOLE AND TRIMETHOPRIM [Concomitant]
     Active Substance: SULFAMETHOXAZOLE\TRIMETHOPRIM

REACTIONS (4)
  - Enterocolitis [Not Recovered/Not Resolved]
  - Stomatitis [Not Recovered/Not Resolved]
  - Neutropenia [Not Recovered/Not Resolved]
  - Platelet count decreased [Recovered/Resolved]

NARRATIVE: CASE EVENT DATE: 20180904
